FAERS Safety Report 6934639-6 (Version None)
Quarter: 2010Q3

REPORT INFORMATION
  Report Type: 
  Country: None (occurrence: None)
  Receive Date: 20100820
  Receipt Date: 20100811
  Transmission Date: 20110219
  Serious: Yes (Hospitalization)
  Sender: FDA-Public Use
  Company Number: BE-ABBOTT-10P-013-0627554-00

PATIENT
  Sex: Female

DRUGS (19)
  1. HUMIRA [Suspect]
     Indication: RHEUMATOID ARTHRITIS
     Dates: start: 20000101
  2. NOVOMIX 30 [Concomitant]
     Indication: PRODUCT USED FOR UNKNOWN INDICATION
     Dosage: 20 UNIT AM AND 16 UNITS PM
  3. NOVOMIX 30 [Concomitant]
     Dosage: 20 UNIT AM AND 12 UNITS PM
  4. BELSAR [Concomitant]
     Indication: PRODUCT USED FOR UNKNOWN INDICATION
  5. ZANIDIP [Concomitant]
     Indication: PRODUCT USED FOR UNKNOWN INDICATION
  6. ZANIDIP [Concomitant]
  7. NOBITEN [Concomitant]
     Indication: PRODUCT USED FOR UNKNOWN INDICATION
  8. NOBITEN [Concomitant]
  9. BUMEX [Concomitant]
     Indication: PRODUCT USED FOR UNKNOWN INDICATION
  10. MOXONIDINE [Concomitant]
     Indication: PRODUCT USED FOR UNKNOWN INDICATION
  11. NITRODERM [Concomitant]
     Indication: PRODUCT USED FOR UNKNOWN INDICATION
     Route: 062
  12. ASAFLOW [Concomitant]
     Indication: PRODUCT USED FOR UNKNOWN INDICATION
  13. LIPITOR [Concomitant]
     Indication: PRODUCT USED FOR UNKNOWN INDICATION
  14. CLOZAN [Concomitant]
     Indication: PRODUCT USED FOR UNKNOWN INDICATION
  15. CALCIUM CARBONATE [Concomitant]
     Indication: PRODUCT USED FOR UNKNOWN INDICATION
  16. D-CURE [Concomitant]
     Indication: PRODUCT USED FOR UNKNOWN INDICATION
  17. D-CURE [Concomitant]
  18. LYSOMUCIL [Concomitant]
     Indication: PRODUCT USED FOR UNKNOWN INDICATION
  19. NULYTELY [Concomitant]
     Indication: PRODUCT USED FOR UNKNOWN INDICATION

REACTIONS (10)
  - ANAEMIA [None]
  - ASTHENIA [None]
  - CHILLS [None]
  - COUGH [None]
  - DYSPNOEA [None]
  - HEAD DISCOMFORT [None]
  - HEADACHE [None]
  - HYPERTENSION [None]
  - OEDEMA PERIPHERAL [None]
  - VITAMIN D DECREASED [None]
